FAERS Safety Report 18033859 (Version 1)
Quarter: 2020Q3

REPORT INFORMATION
  Report Type: Spontaneous
  Country: CN (occurrence: CN)
  Receive Date: 20200716
  Receipt Date: 20200716
  Transmission Date: 20201103
  Serious: Yes (Life-Threatening)
  Sender: FDA-Public Use
  Company Number: CN-ABBVIE-20K-035-3483957-00

PATIENT
  Age: 23 Year
  Sex: Female
  Weight: 46 kg

DRUGS (2)
  1. LAMIVUDINE. [Suspect]
     Active Substance: LAMIVUDINE
     Indication: OCCUPATIONAL EXPOSURE TO COMMUNICABLE DISEASE
     Route: 048
     Dates: start: 20200322, end: 20200422
  2. ALUVIA [Suspect]
     Active Substance: LOPINAVIR\RITONAVIR
     Indication: OCCUPATIONAL EXPOSURE TO COMMUNICABLE DISEASE
     Route: 048
     Dates: start: 20200322, end: 20200422

REACTIONS (10)
  - Asthenia [Recovered/Resolved]
  - Off label use [Unknown]
  - Vomiting [Unknown]
  - Nausea [Recovered/Resolved]
  - Chest discomfort [Recovered/Resolved]
  - Palpitations [Recovered/Resolved]
  - Dizziness [Recovered/Resolved]
  - Abdominal pain upper [Recovered/Resolved]
  - Diarrhoea [Recovered/Resolved]
  - Abdominal pain [Recovered/Resolved]

NARRATIVE: CASE EVENT DATE: 20200322
